FAERS Safety Report 20848510 (Version 1)
Quarter: 2022Q2

REPORT INFORMATION
  Report Type: Spontaneous
  Country: US (occurrence: None)
  Receive Date: 20220518
  Receipt Date: 20220518
  Transmission Date: 20220721
  Serious: Yes (Death)
  Sender: FDA-Public Use
  Company Number: None

PATIENT
  Age: 71 Year
  Sex: Male
  Weight: 72.39 kg

DRUGS (8)
  1. INTRON A [Suspect]
     Active Substance: INTERFERON ALFA-2B
     Indication: Hairy cell leukaemia
     Dosage: 3.6MU 3 TIMES WEEKLY SUBCUTANEOULY? ?
     Route: 058
  2. CYMBALTA [Concomitant]
     Active Substance: DULOXETINE HYDROCHLORIDE
  3. FISH OIL [Concomitant]
     Active Substance: FISH OIL
  4. FLOMAX [Concomitant]
     Active Substance: TAMSULOSIN HYDROCHLORIDE
  5. NORCO [Concomitant]
     Active Substance: ACETAMINOPHEN\HYDROCODONE BITARTRATE
  6. LYRICA [Concomitant]
     Active Substance: PREGABALIN
  7. TESTOSTERONE [Concomitant]
     Active Substance: TESTOSTERONE
  8. TRIZOLAM [Concomitant]

REACTIONS (1)
  - Death [None]
